FAERS Safety Report 6270069-0 (Version None)
Quarter: 2009Q3

REPORT INFORMATION
  Report Type: 
  Country: None (occurrence: None)
  Receive Date: 20090716
  Receipt Date: 20090709
  Transmission Date: 20100115
  Serious: Yes (Life-Threatening, Other)
  Sender: FDA-Public Use
  Company Number: US-JNJFOC-20090702941

PATIENT
  Age: 26 Year
  Sex: Female

DRUGS (5)
  1. ULTRACET [Suspect]
     Indication: DRUG USE FOR UNKNOWN INDICATION
     Route: 065
  2. ANTIPSYCHOTIC [Suspect]
     Indication: DRUG USE FOR UNKNOWN INDICATION
     Route: 065
  3. SEDATIVE [Suspect]
     Indication: DRUG USE FOR UNKNOWN INDICATION
     Route: 065
  4. MUSCLE RELAXANT [Suspect]
     Indication: DRUG USE FOR UNKNOWN INDICATION
     Route: 065
  5. SSRI [Suspect]
     Indication: DRUG USE FOR UNKNOWN INDICATION
     Route: 065

REACTIONS (4)
  - HYPOKALAEMIA [None]
  - MULTIPLE DRUG OVERDOSE [None]
  - SINUS TACHYCARDIA [None]
  - SUICIDE ATTEMPT [None]
